FAERS Safety Report 14249068 (Version 2)
Quarter: 2017Q4

REPORT INFORMATION
  Report Type: Spontaneous
  Country: US (occurrence: US)
  Receive Date: 20171204
  Receipt Date: 20171208
  Transmission Date: 20180321
  Serious: No
  Sender: FDA-Public Use
  Company Number: US-GLAXOSMITHKLINE-US2017GSK183102

PATIENT
  Sex: Female

DRUGS (15)
  1. BENLYSTA [Suspect]
     Active Substance: BELIMUMAB
     Indication: SYSTEMIC LUPUS ERYTHEMATOSUS
     Dosage: 200 MG/ML, UNK
     Route: 058
     Dates: start: 201610
  2. ONDANSETRON [Concomitant]
     Active Substance: ONDANSETRON
  3. BENLYSTA [Suspect]
     Active Substance: BELIMUMAB
     Indication: SYSTEMIC LUPUS ERYTHEMATOSUS
     Dosage: UNK
     Route: 042
     Dates: end: 20171023
  4. INFLUENZA VACCINE [Concomitant]
     Active Substance: INFLUENZA VIRUS VACCINE
  5. TOPAMAX [Concomitant]
     Active Substance: TOPIRAMATE
  6. ALBUTEROL INHALATION POWDER [Concomitant]
     Active Substance: ALBUTEROL
  7. DICLOFENAC [Concomitant]
     Active Substance: DICLOFENAC
  8. DULOXETINE. [Concomitant]
     Active Substance: DULOXETINE
  9. ACETAMINOPHEN + BUTALBITAL [Concomitant]
  10. FLEXERIL [Concomitant]
     Active Substance: CYCLOBENZAPRINE HYDROCHLORIDE
  11. NEXIUM [Concomitant]
     Active Substance: ESOMEPRAZOLE MAGNESIUM
  12. CELEBREX [Concomitant]
     Active Substance: CELECOXIB
  13. FLONASE ALLERGY RELIEF [Concomitant]
     Active Substance: FLUTICASONE PROPIONATE
     Dosage: UNK
  14. ADVAIR DISKUS [Concomitant]
     Active Substance: FLUTICASONE PROPIONATE\SALMETEROL XINAFOATE
  15. HYDROCODONE/ACETAMINOPHEN [Concomitant]
     Active Substance: ACETAMINOPHEN\HYDROCODONE

REACTIONS (10)
  - Drug dose omission [Unknown]
  - Therapeutic response shortened [Unknown]
  - Drug ineffective [Unknown]
  - Arthralgia [Not Recovered/Not Resolved]
  - Incorrect dose administered [Unknown]
  - Insomnia [Unknown]
  - Joint swelling [Unknown]
  - Pain [Not Recovered/Not Resolved]
  - Sleep disorder due to a general medical condition [Unknown]
  - Wrong technique in device usage process [Unknown]
